FAERS Safety Report 25179357 (Version 1)
Quarter: 2025Q2

REPORT INFORMATION
  Report Type: Spontaneous
  Country: US (occurrence: US)
  Receive Date: 20250409
  Receipt Date: 20250409
  Transmission Date: 20250716
  Serious: Yes (Death, Life-Threatening, Hospitalization, Other)
  Sender: GLAND PHARMA
  Company Number: US-GLANDPHARMA-US-2025GLNLIT00965

PATIENT
  Age: 58 Year
  Sex: Male

DRUGS (4)
  1. FLUOROURACIL [Suspect]
     Active Substance: FLUOROURACIL
     Indication: Adenocarcinoma of colon
  2. FLUOROURACIL [Suspect]
     Active Substance: FLUOROURACIL
  3. OXALIPLATIN [Concomitant]
     Active Substance: OXALIPLATIN
  4. LEUCOVORIN [Concomitant]
     Active Substance: LEUCOVORIN\LEUCOVORIN CALCIUM

REACTIONS (28)
  - Sepsis [Fatal]
  - Toxicity to various agents [Fatal]
  - Neutropenic colitis [Fatal]
  - Atrial fibrillation [Fatal]
  - Pancytopenia [Fatal]
  - Renal infarct [Fatal]
  - Splenic infarction [Fatal]
  - Hypoxia [Fatal]
  - Middle cerebral artery stroke [Fatal]
  - Acute respiratory distress syndrome [Fatal]
  - Cardiac arrest [Fatal]
  - Colitis [Fatal]
  - Renal failure [Fatal]
  - Blood lactic acid increased [Fatal]
  - Blood creatinine increased [Fatal]
  - Bradycardia [Fatal]
  - Pleural effusion [Fatal]
  - Hypernatraemia [Fatal]
  - International normalised ratio increased [Fatal]
  - Blood albumin decreased [Fatal]
  - Blood phosphorus decreased [Fatal]
  - Epigastric discomfort [Fatal]
  - Fatigue [Fatal]
  - Nausea [Fatal]
  - Vomiting [Fatal]
  - Mucosal inflammation [Fatal]
  - Myelosuppression [Fatal]
  - Neutropenia [Fatal]
